FAERS Safety Report 7565337-6 (Version None)
Quarter: 2011Q2

REPORT INFORMATION
  Report Type: 
  Country: None (occurrence: None)
  Receive Date: 20110623
  Receipt Date: 20110616
  Transmission Date: 20111010
  Serious: Yes (Hospitalization)
  Sender: FDA-Public Use
  Company Number: US-BIOGENIDEC-2011BI019908

PATIENT
  Age: 43 Year
  Sex: Female

DRUGS (2)
  1. AVONEX [Suspect]
     Route: 030
     Dates: start: 19960601
  2. AVONEX [Suspect]
     Indication: MULTIPLE SCLEROSIS
     Route: 030

REACTIONS (6)
  - LIPID METABOLISM DISORDER [None]
  - GALLBLADDER DISORDER [None]
  - INJECTION SITE MASS [None]
  - ABDOMINAL HERNIA [None]
  - LOCALISED OEDEMA [None]
  - GROIN PAIN [None]
